FAERS Safety Report 17996276 (Version 2)
Quarter: 2020Q3

REPORT INFORMATION
  Report Type: Report from Study
  Country: IT (occurrence: IT)
  Receive Date: 20200708
  Receipt Date: 20200720
  Transmission Date: 20201103
  Serious: Yes (Other)
  Sender: FDA-Public Use
  Company Number: NVSC2020IT175338

PATIENT
  Age: 47 Year
  Weight: 64 kg

DRUGS (1)
  1. GILENYA [Suspect]
     Active Substance: FINGOLIMOD HYDROCHLORIDE
     Indication: MULTIPLE SCLEROSIS
     Dosage: 0.5 MG, QD
     Route: 048
     Dates: start: 20130228, end: 20170118

REACTIONS (9)
  - Electrocardiogram ST segment elevation [Recovered/Resolved]
  - Alanine aminotransferase increased [Unknown]
  - Micturition urgency [Not Recovered/Not Resolved]
  - Pollakiuria [Not Recovered/Not Resolved]
  - Blood cholesterol increased [Unknown]
  - High density lipoprotein decreased [Unknown]
  - Electrocardiogram QRS complex abnormal [Unknown]
  - Lymphocyte count decreased [Unknown]
  - Angina pectoris [Recovered/Resolved]

NARRATIVE: CASE EVENT DATE: 20160129
